FAERS Safety Report 10072088 (Version 2)
Quarter: 2014Q2

REPORT INFORMATION
  Report Type: Spontaneous
  Country: FR (occurrence: None)
  Receive Date: 20140409
  Receipt Date: 20140411
  Transmission Date: 20141212
  Serious: Yes (Hospitalization)
  Sender: FDA-Public Use
  Company Number: 2014-000899

PATIENT
  Age: 57 Year
  Sex: Female

DRUGS (15)
  1. ACTONEL (RISEDRONATE SODIUM) TABLET, 35MG [Suspect]
     Indication: OSTEOPOROSIS
     Route: 048
     Dates: end: 20140223
  2. ZINNAT [Suspect]
     Indication: PULMONARY INFARCTION
     Route: 048
     Dates: start: 20140210, end: 20140212
  3. METOJECT (METHOTREXATE SODIUM) [Suspect]
     Indication: RHEUMATOID ARTHRITIS
     Dosage: 1 DF, 1/WEEK, INTRAMUSCULAR
     Route: 030
     Dates: start: 20131215, end: 20140213
  4. RISPERIDONE [Suspect]
     Indication: PSYCHOTIC DISORDER
     Route: 048
     Dates: start: 20131003, end: 20140213
  5. SERTRALINE (SERTRALINE) [Suspect]
     Indication: PSYCHOTIC DISORDER
     Route: 048
     Dates: start: 20131107, end: 20140213
  6. OLANZAPINE (OLANZAPINE) [Suspect]
     Route: 048
     Dates: start: 20131107, end: 20140213
  7. COVERAM [Suspect]
     Indication: HYPERTENSION
     Route: 048
     Dates: end: 20140210
  8. DITROPAN [Suspect]
     Indication: URINARY INCONTINENCE
     Route: 048
     Dates: end: 20140213
  9. EFFERALGAN [Suspect]
     Indication: PAIN
     Route: 048
     Dates: end: 20140213
  10. IXPRIM [Suspect]
     Indication: PAIN
     Route: 048
     Dates: end: 20140213
  11. PANTOPRAZOLE (PANTOPRAZOLE) [Suspect]
     Indication: PROPHYLAXIS AGAINST GASTROINTESTINAL ULCER
     Route: 048
     Dates: end: 20140213
  12. SERETIDE (FLUTICASONE PROPIONATE, SALMETEROL XINAFOATE) [Suspect]
     Indication: CHRONIC OBSTRUCTIVE PULMONARY DISEASE
     Dosage: 1 DF, BID, RESPIRATORY
     Dates: end: 20140213
  13. SULFARLEM [Suspect]
     Indication: CHRONIC OBSTRUCTIVE PULMONARY DISEASE
     Dosage: 1 DF, TID, ORAL
     Route: 048
     Dates: end: 20140213
  14. DIFFU K (POTASSIUM CHLORIDE) (POTASSIUM CHLORIDE) [Suspect]
     Indication: HYPOKALAEMIA
     Route: 048
  15. SPECIAFOLDINE (FOLIC ACID) [Concomitant]

REACTIONS (7)
  - Drug-induced liver injury [None]
  - Respiratory failure [None]
  - Infection [None]
  - Asthenia [None]
  - Rales [None]
  - Cytomegalovirus hepatitis [None]
  - Hypotension [None]
